FAERS Safety Report 13399175 (Version 1)
Quarter: 2017Q2

REPORT INFORMATION
  Report Type: Other
  Country: GB (occurrence: GB)
  Receive Date: 20170404
  Receipt Date: 20170404
  Transmission Date: 20170830
  Serious: Yes (Life-Threatening, Hospitalization)
  Sender: FDA-Public Use
  Company Number: GB-LUPIN PHARMACEUTICALS INC.-E2B_00005357

PATIENT
  Age: 15 Year
  Sex: Female
  Weight: 49.6 kg

DRUGS (1)
  1. SERTRALINE [Suspect]
     Active Substance: SERTRALINE HYDROCHLORIDE
     Indication: DEPRESSED MOOD
     Dosage: 50 MG,QD,
     Route: 048
     Dates: start: 20160317, end: 20160412

REACTIONS (3)
  - Hypotension [Unknown]
  - Suicide attempt [Unknown]
  - Overdose [Unknown]

NARRATIVE: CASE EVENT DATE: 20160411
